FAERS Safety Report 5333976-9 (Version None)
Quarter: 2007Q2

REPORT INFORMATION
  Report Type: 
  Country: None (occurrence: None)
  Receive Date: 20070524
  Receipt Date: 20070512
  Transmission Date: 20071010
  Serious: Yes (Other)
  Sender: FDA-Public Use
  Company Number: US-PFIZER INC-2007021818

PATIENT
  Sex: Female
  Weight: 59 kg

DRUGS (8)
  1. CHANTIX [Suspect]
     Indication: SMOKING CESSATION THERAPY
     Dates: start: 20070201, end: 20070315
  2. ALL OTHER THERAPEUTIC PRODUCTS [Concomitant]
  3. FISH OIL [Concomitant]
     Dosage: DAILY DOSE:1200MG
  4. FOLIC ACID [Concomitant]
     Dosage: DAILY DOSE:1MG
  5. NIASPAN [Concomitant]
     Dosage: DAILY DOSE:1000MG
  6. CRESTOR [Concomitant]
  7. ZETIA [Concomitant]
  8. ACETYLSALICYLIC ACID SRT [Concomitant]

REACTIONS (2)
  - EPISTAXIS [None]
  - NASAL MUCOSAL DISORDER [None]
